FAERS Safety Report 5374394-7 (Version None)
Quarter: 2007Q2

REPORT INFORMATION
  Report Type: 
  Country: None (occurrence: None)
  Receive Date: 20070629
  Receipt Date: 20070118
  Transmission Date: 20071010
  Serious: No
  Sender: FDA-Public Use
  Company Number: A0636392A

PATIENT
  Sex: Female

DRUGS (1)
  1. VENTOLIN HFA [Suspect]

REACTIONS (2)
  - DYSGEUSIA [None]
  - NAUSEA [None]
